FAERS Safety Report 8321973-0 (Version None)
Quarter: 2012Q2

REPORT INFORMATION
  Report Type: 
  Country: None (occurrence: None)
  Receive Date: 20120430
  Receipt Date: 20120417
  Transmission Date: 20120825
  Serious: Yes (Other)
  Sender: FDA-Public Use
  Company Number: US-JNJFOC-20120408651

PATIENT
  Sex: Female

DRUGS (2)
  1. VISINE II EYE DROPS [Suspect]
     Route: 047
  2. VISINE II EYE DROPS [Suspect]
     Indication: PRODUCT USED FOR UNKNOWN INDICATION
     Route: 047

REACTIONS (6)
  - EYE IRRITATION [None]
  - VISION BLURRED [None]
  - EXPIRED DRUG ADMINISTERED [None]
  - OCULAR HYPERAEMIA [None]
  - EYE SWELLING [None]
  - PRODUCT LABEL ISSUE [None]
